FAERS Safety Report 26185559 (Version 1)
Quarter: 2025Q4

REPORT INFORMATION
  Report Type: Spontaneous
  Country: CA (occurrence: CA)
  Receive Date: 20251222
  Receipt Date: 20251222
  Transmission Date: 20260119
  Serious: Yes (Other)
  Sender: TEVA
  Company Number: CA-TEVA-VS-3405222

PATIENT
  Age: 82 Year
  Sex: Female

DRUGS (2)
  1. SPIRONOLACTONE [Suspect]
     Active Substance: SPIRONOLACTONE
     Indication: Product used for unknown indication
     Route: 065
  2. FUROSEMIDE [Suspect]
     Active Substance: FUROSEMIDE
     Indication: Heart failure with reduced ejection fraction
     Route: 065

REACTIONS (3)
  - Fatigue [Unknown]
  - Rhinorrhoea [Unknown]
  - Dizziness [Unknown]
